FAERS Safety Report 25104658 (Version 1)
Quarter: 2025Q1

REPORT INFORMATION
  Report Type: Report from Study
  Country: ES (occurrence: ES)
  Receive Date: 20250321
  Receipt Date: 20250321
  Transmission Date: 20250409
  Serious: Yes (Other)
  Sender: ABBVIE
  Company Number: ES-JNJFOC-20250346476

PATIENT

DRUGS (2)
  1. VENETOCLAX [Suspect]
     Active Substance: VENETOCLAX
     Indication: Chronic lymphocytic leukaemia
     Route: 048
  2. IMBRUVICA [Suspect]
     Active Substance: IBRUTINIB
     Indication: Chronic lymphocytic leukaemia
     Route: 048

REACTIONS (9)
  - Atrial fibrillation [Unknown]
  - Erythema nodosum [Unknown]
  - Neutropenia [Unknown]
  - Diarrhoea [Unknown]
  - Aphthous ulcer [Unknown]
  - Arthralgia [Unknown]
  - Hypertension [Unknown]
  - Haemorrhage [Unknown]
  - Anaemia [Unknown]
